FAERS Safety Report 13900269 (Version 5)
Quarter: 2017Q4

REPORT INFORMATION
  Report Type: Spontaneous
  Country: US (occurrence: US)
  Receive Date: 20170824
  Receipt Date: 20171215
  Transmission Date: 20180320
  Serious: Yes (Death, Hospitalization, Other)
  Sender: FDA-Public Use
  Company Number: US-SAOL THERAPEUTICS-2017SAO01348

PATIENT
  Sex: Female
  Weight: 62.59 kg

DRUGS (2)
  1. LIORESAL [Suspect]
     Active Substance: BACLOFEN
     Indication: MUSCLE SPASTICITY
     Dosage: UNK
  2. LIORESAL [Suspect]
     Active Substance: BACLOFEN
     Indication: MULTIPLE SCLEROSIS
     Dosage: UNK

REACTIONS (5)
  - Calculus urinary [Unknown]
  - Acute respiratory distress syndrome [Fatal]
  - Myocardial infarction [Unknown]
  - Urinary tract infection [Unknown]
  - Volvulus [Unknown]
